FAERS Safety Report 9401551 (Version 1)
Quarter: 2013Q3

REPORT INFORMATION
  Report Type: Spontaneous
  Country: US (occurrence: US)
  Receive Date: 20130716
  Receipt Date: 20130716
  Transmission Date: 20140515
  Serious: Yes (Other)
  Sender: FDA-Public Use
  Company Number: US-ROCHE-1248558

PATIENT
  Age: 66 Year
  Sex: Female

DRUGS (4)
  1. BONIVA [Suspect]
     Indication: OSTEOPOROSIS
     Route: 065
     Dates: start: 200601, end: 200710
  2. BONIVA [Suspect]
     Route: 065
     Dates: end: 201107
  3. FOSAMAX [Suspect]
     Indication: OSTEOPOROSIS
     Route: 065
     Dates: start: 199908, end: 200605
  4. FOSAMAX [Suspect]
     Route: 065
     Dates: start: 200802, end: 201008

REACTIONS (4)
  - Low turnover osteopathy [Unknown]
  - Femur fracture [Unknown]
  - Emotional distress [Unknown]
  - Anxiety [Unknown]
